FAERS Safety Report 5215288-7 (Version None)
Quarter: 2007Q1

REPORT INFORMATION
  Report Type: 
  Country: None (occurrence: None)
  Receive Date: 20070117
  Receipt Date: 20070103
  Transmission Date: 20070707
  Serious: Yes (Death, Life-Threatening, Hospitalization, Other)
  Sender: FDA-Public Use
  Company Number: 2006-08-0743

PATIENT
  Age: 61 Year
  Sex: Male

DRUGS (3)
  1. TEMODAL [Suspect]
     Indication: GLIOBLASTOMA
     Dosage: 100 MG/M2; QD; PO
     Route: 048
     Dates: start: 20040601, end: 20060501
  2. FENANTOIN (CON.) [Concomitant]
  3. RADIATION THERAPY (PREV.) [Concomitant]

REACTIONS (3)
  - BONE MARROW DISORDER [None]
  - CEREBRAL HAEMORRHAGE [None]
  - HAEMOLYTIC ANAEMIA [None]
